FAERS Safety Report 6388233-9 (Version None)
Quarter: 2009Q4

REPORT INFORMATION
  Report Type: 
  Country: None (occurrence: None)
  Receive Date: 20091005
  Receipt Date: 20090929
  Transmission Date: 20100525
  Serious: Yes (Hospitalization, Other)
  Sender: FDA-Public Use
  Company Number: US-ABBOTT-09P-163-0599892-00

PATIENT
  Sex: Male
  Weight: 108.96 kg

DRUGS (6)
  1. NIASPAN [Suspect]
     Indication: BLOOD CHOLESTEROL INCREASED
     Route: 048
     Dates: start: 20040101, end: 20060101
  2. NIASPAN [Suspect]
     Indication: LOW DENSITY LIPOPROTEIN DECREASED
     Route: 048
     Dates: start: 20060101, end: 20070101
  3. NIASPAN [Suspect]
     Route: 048
     Dates: start: 20070101, end: 20080101
  4. NIASPAN [Suspect]
     Route: 048
     Dates: start: 20080101
  5. TRILIPIX [Suspect]
     Indication: BLOOD TRIGLYCERIDES INCREASED
     Route: 048
     Dates: start: 20090301
  6. METAMUCIL [Concomitant]
     Indication: DIVERTICULITIS

REACTIONS (7)
  - ABDOMINAL PAIN [None]
  - BLOOD TRIGLYCERIDES INCREASED [None]
  - CORONARY ARTERY OCCLUSION [None]
  - DIVERTICULAR PERFORATION [None]
  - DRUG INEFFECTIVE [None]
  - JOINT SPRAIN [None]
  - MEDICATION RESIDUE [None]
